FAERS Safety Report 10736069 (Version 2)
Quarter: 2015Q1

REPORT INFORMATION
  Report Type: Spontaneous
  Country: JP (occurrence: None)
  Receive Date: 20150121
  Receipt Date: 20150306
  Transmission Date: 20150721
  Serious: Yes (Hospitalization)
  Sender: FDA-Public Use
  Company Number: 2015BCR00001

PATIENT
  Age: 70 Year
  Sex: Male

DRUGS (1)
  1. RAPIACTA [Suspect]
     Active Substance: PERAMIVIR
     Indication: INFLUENZA
     Route: 042
     Dates: start: 20141230, end: 20141230

REACTIONS (3)
  - Acute kidney injury [None]
  - Anuria [None]
  - Loss of consciousness [None]

NARRATIVE: CASE EVENT DATE: 20150102
